FAERS Safety Report 7395180-2 (Version None)
Quarter: 2011Q2

REPORT INFORMATION
  Report Type: 
  Country: None (occurrence: None)
  Receive Date: 20110405
  Receipt Date: 20110330
  Transmission Date: 20111010
  Serious: Yes (Other)
  Sender: FDA-Public Use
  Company Number: CN-GENZYME-FLUD-1000548

PATIENT
  Sex: Male
  Weight: 60 kg

DRUGS (2)
  1. FLUDARA [Suspect]
     Indication: ACUTE MYELOID LEUKAEMIA
     Dosage: 30 MG/M2, QD
     Route: 065
     Dates: start: 20101127, end: 20101201
  2. ARA-C [Suspect]
     Indication: ACUTE MYELOID LEUKAEMIA
     Dosage: 2 G/M2, QD
     Route: 065
     Dates: start: 20101127, end: 20101201

REACTIONS (4)
  - CHEST PAIN [None]
  - TACHYPNOEA [None]
  - PYREXIA [None]
  - LUNG INFECTION [None]
